FAERS Safety Report 24673222 (Version 1)
Quarter: 2024Q4

REPORT INFORMATION
  Report Type: Spontaneous
  Country: US (occurrence: US)
  Receive Date: 20241128
  Receipt Date: 20241128
  Transmission Date: 20250115
  Serious: No
  Sender: IBSA INSTITUT BIOCHIMIQUE
  Company Number: US-IBSA PHARMA INC.-2024IBS000451

PATIENT

DRUGS (1)
  1. TIROSINT [Suspect]
     Active Substance: LEVOTHYROXINE SODIUM
     Indication: Product used for unknown indication
     Dosage: UNK
     Dates: end: 20240614

REACTIONS (7)
  - Weight increased [Recovered/Resolved]
  - Disease recurrence [Unknown]
  - Trichorrhexis [Unknown]
  - Peripheral swelling [Unknown]
  - Vein disorder [Unknown]
  - Hypersensitivity [Unknown]
  - Alopecia [Unknown]
